FAERS Safety Report 18169005 (Version 2)
Quarter: 2020Q3

REPORT INFORMATION
  Report Type: Spontaneous
  Country: DE (occurrence: DE)
  Receive Date: 20200818
  Receipt Date: 20200909
  Transmission Date: 20201103
  Serious: Yes (Life-Threatening, Hospitalization, Disabling, Other)
  Sender: FDA-Public Use
  Company Number: DE-009507513-2008DEU008467

PATIENT
  Age: 78 Year
  Sex: Male
  Weight: 67 kg

DRUGS (6)
  1. NALOXONE HYDROCHLORIDE (+) TILIDINE HYDROCHLORIDE [Concomitant]
     Active Substance: NALOXONE HYDROCHLORIDE\TILIDINE HYDROCHLORIDE
     Dosage: 1?0?1
  2. SERTRALINE HYDROCHLORIDE. [Concomitant]
     Active Substance: SERTRALINE HYDROCHLORIDE
     Dosage: 1?0?0
  3. MIRTAZAPINE. [Concomitant]
     Active Substance: MIRTAZAPINE
     Dosage: 0?0?0.5
  4. PANTOPRAZOLE [Concomitant]
     Active Substance: PANTOPRAZOLE
     Dosage: 1?0?0
  5. KEYTRUDA [Suspect]
     Active Substance: PEMBROLIZUMAB
     Indication: MALIGNANT MELANOMA
     Dosage: 200 MILLIGRAM, Q3W
     Dates: start: 20181204, end: 202006
  6. RISPERIDONE. [Concomitant]
     Active Substance: RISPERIDONE
     Dosage: 0?0?1

REACTIONS (8)
  - Confusional state [Recovering/Resolving]
  - Encephalitis [Recovering/Resolving]
  - Dementia [Not Recovered/Not Resolved]
  - Dysarthria [Recovering/Resolving]
  - Ataxia [Recovering/Resolving]
  - Cerebral atrophy [Not Recovered/Not Resolved]
  - Bradyphrenia [Recovering/Resolving]
  - Motor dysfunction [Not Recovered/Not Resolved]

NARRATIVE: CASE EVENT DATE: 202006
